FAERS Safety Report 8979036 (Version 1)
Quarter: 2012Q4

REPORT INFORMATION
  Report Type: 
  Country: US (occurrence: US)
  Receive Date: 20121221
  Receipt Date: 20121221
  Transmission Date: 20130627
  Serious: No
  Sender: FDA-Public Use
  Company Number: US-TEVA-376941USA

PATIENT
  Sex: Male
  Weight: 106.69 kg

DRUGS (7)
  1. NUVIGIL [Suspect]
     Indication: SLEEP APNOEA SYNDROME
     Dosage: QAM
     Route: 048
     Dates: start: 201203
  2. NORVASC [Concomitant]
     Indication: BLOOD PRESSURE
     Dosage: 5 Milligram Daily;
     Route: 048
  3. AVAPRO [Concomitant]
     Indication: BLOOD PRESSURE
     Dosage: 150 Milligram Daily;
     Route: 048
  4. LORAZEPAM [Concomitant]
     Indication: ANXIETY
     Dosage: 1 Milligram Daily;
     Route: 048
  5. ASA [Concomitant]
     Dosage: 81 Milligram Daily;
     Route: 048
  6. VITAMIN D NOS [Concomitant]
     Dosage: 2000 IU (International Unit) Daily;
     Route: 048
  7. MULTIVITAMIN [Concomitant]
     Dosage: 1 Dosage forms Daily;
     Route: 048

REACTIONS (3)
  - Feeling abnormal [Unknown]
  - Heart rate increased [Unknown]
  - Anxiety [Unknown]
